FAERS Safety Report 6821014-8 (Version None)
Quarter: 2010Q3

REPORT INFORMATION
  Report Type: 
  Country: None (occurrence: None)
  Receive Date: 20100707
  Receipt Date: 20071204
  Transmission Date: 20110219
  Serious: No
  Sender: FDA-Public Use
  Company Number: US-PFIZER INC-2007102149

PATIENT
  Sex: Male
  Weight: 63.636 kg

DRUGS (10)
  1. ZOLOFT [Suspect]
     Indication: DEPRESSION
     Dates: start: 20071001
  2. VERAPAMIL [Concomitant]
     Indication: HYPERTENSION
  3. ZYRTEC [Concomitant]
     Indication: HYPERSENSITIVITY
  4. FINASTERIDE [Concomitant]
  5. VYTORIN [Concomitant]
     Indication: BLOOD CHOLESTEROL INCREASED
  6. WARFARIN SODIUM [Concomitant]
  7. ACIPHEX [Concomitant]
     Indication: HIATUS HERNIA
  8. TEMAZEPAM [Concomitant]
     Indication: SLEEP DISORDER
  9. ALPRAZOLAM [Concomitant]
  10. ALL OTHER THERAPEUTIC PRODUCTS [Concomitant]
     Indication: MACULAR DEGENERATION

REACTIONS (1)
  - HYPERHIDROSIS [None]
